FAERS Safety Report 20659383 (Version 2)
Quarter: 2022Q2

REPORT INFORMATION
  Report Type: Spontaneous
  Country: US (occurrence: US)
  Receive Date: 20220331
  Receipt Date: 20220419
  Transmission Date: 20220721
  Serious: No
  Sender: FDA-Public Use
  Company Number: US-TAKEDA-2022TUS021060

PATIENT
  Age: 9 Year
  Sex: Female
  Weight: 34 kg

DRUGS (3)
  1. ADDERALL XR [Suspect]
     Active Substance: AMPHETAMINE ASPARTATE\AMPHETAMINE SULFATE\DEXTROAMPHETAMINE SACCHARATE\DEXTROAMPHETAMINE SULFATE
     Indication: Attention deficit hyperactivity disorder
     Dosage: 10 MILLIGRAM, QD
     Route: 065
     Dates: start: 20210323
  2. ADDERALL XR [Suspect]
     Active Substance: AMPHETAMINE ASPARTATE\AMPHETAMINE SULFATE\DEXTROAMPHETAMINE SACCHARATE\DEXTROAMPHETAMINE SULFATE
     Dosage: 5 MILLIGRAM, QD
     Route: 065
     Dates: start: 20220210
  3. ADDERALL XR [Suspect]
     Active Substance: AMPHETAMINE ASPARTATE\AMPHETAMINE SULFATE\DEXTROAMPHETAMINE SACCHARATE\DEXTROAMPHETAMINE SULFATE
     Dosage: 10 MILLIGRAM, QD
     Route: 048
     Dates: start: 20210325

REACTIONS (6)
  - Eating disorder [Unknown]
  - Drug ineffective [Unknown]
  - Crying [Recovered/Resolved]
  - Mood altered [Recovered/Resolved]
  - Abnormal behaviour [Unknown]
  - Nausea [Unknown]

NARRATIVE: CASE EVENT DATE: 20220325
